FAERS Safety Report 9253772 (Version 1)
Quarter: 2013Q2

REPORT INFORMATION
  Report Type: Spontaneous
  Country: US (occurrence: US)
  Receive Date: 20130425
  Receipt Date: 20130425
  Transmission Date: 20140414
  Serious: No
  Sender: FDA-Public Use
  Company Number: US-PFIZER INC-2013128292

PATIENT
  Age: 82 Year
  Sex: Female

DRUGS (1)
  1. XALKORI [Suspect]
     Indication: LUNG NEOPLASM MALIGNANT
     Dosage: 250 MG, UNK
     Route: 048
     Dates: start: 20130305

REACTIONS (3)
  - Constipation [Unknown]
  - Dysgeusia [Unknown]
  - Malaise [Unknown]
